FAERS Safety Report 9341060 (Version 2)
Quarter: 2013Q2

REPORT INFORMATION
  Report Type: Spontaneous
  Country: JP (occurrence: JP)
  Receive Date: 20130610
  Receipt Date: 20130614
  Transmission Date: 20140414
  Serious: Yes (Other)
  Sender: FDA-Public Use
  Company Number: JP-B.I. PHARMACEUTICALS,INC./RIDGEFIELD-2013-BI-14359NB

PATIENT
  Age: 70 Year
  Sex: Male

DRUGS (6)
  1. PRAZAXA [Suspect]
     Indication: ATRIAL FIBRILLATION
     Dosage: 220 MG
     Route: 048
     Dates: start: 201209, end: 20130508
  2. ARTIST [Concomitant]
     Dosage: 2.5 MG
     Route: 048
     Dates: start: 201209
  3. NEXIUM [Concomitant]
     Dosage: 10 MG
     Route: 048
     Dates: start: 201305
  4. COVERSYL [Concomitant]
     Dosage: 4 MG
     Route: 048
     Dates: start: 201209
  5. ALDACTONE A [Concomitant]
     Dosage: 25 MG
     Route: 048
     Dates: start: 201209
  6. LASIX [Concomitant]
     Dosage: 10 MG
     Route: 048
     Dates: start: 201209

REACTIONS (3)
  - Colon cancer [Unknown]
  - Occult blood [Unknown]
  - Anaemia [Recovered/Resolved]
